FAERS Safety Report 9808939 (Version 1)
Quarter: 2014Q1

REPORT INFORMATION
  Report Type: Report from Study
  Country: DE (occurrence: DE)
  Receive Date: 20140110
  Receipt Date: 20140110
  Transmission Date: 20141002
  Serious: Yes (Death)
  Sender: FDA-Public Use
  Company Number: DE-GILEAD-2014-0091345

PATIENT
  Age: 41 Year
  Sex: 0

DRUGS (1)
  1. CIDOFOVIR [Suspect]
     Indication: CYTOMEGALOVIRUS INFECTION
     Route: 065

REACTIONS (2)
  - Drug ineffective [Fatal]
  - Pneumonitis [Fatal]
